FAERS Safety Report 4725646-2 (Version None)
Quarter: 2005Q3

REPORT INFORMATION
  Report Type: 
  Country: None (occurrence: None)
  Receive Date: 20050727
  Receipt Date: 20050719
  Transmission Date: 20060218
  Serious: Yes (Other)
  Sender: FDA-Public Use
  Company Number: JP-MERCK-0507USA03410

PATIENT
  Age: 75 Year
  Sex: Male

DRUGS (5)
  1. COZAAR [Suspect]
     Route: 048
     Dates: start: 20050116, end: 20050628
  2. LANSOPRAZOLE [Concomitant]
     Route: 048
     Dates: start: 20041217
  3. WARFARIN [Concomitant]
     Route: 048
     Dates: start: 20041217
  4. LASIX [Concomitant]
     Route: 065
  5. LAC-B [Concomitant]
     Route: 048
     Dates: start: 20041217

REACTIONS (1)
  - RHABDOMYOLYSIS [None]
